FAERS Safety Report 26086396 (Version 1)
Quarter: 2025Q4

REPORT INFORMATION
  Report Type: Spontaneous
  Country: GB (occurrence: GB)
  Receive Date: 20251125
  Receipt Date: 20251125
  Transmission Date: 20260117
  Serious: Yes (Hospitalization, Other)
  Sender: GLAND PHARMA LTD
  Company Number: GB-GLANDPHARMA-GB-2025GLNLIT02080

PATIENT
  Age: 86 Year
  Sex: Female

DRUGS (24)
  1. OXALIPLATIN [Suspect]
     Active Substance: OXALIPLATIN
     Indication: Adenocarcinoma gastric
     Dosage: CYCLE ONE AND CYCLE TWO
     Route: 065
     Dates: start: 202501
  2. OXALIPLATIN [Suspect]
     Active Substance: OXALIPLATIN
     Dosage: CYCLE THREE
     Route: 065
     Dates: start: 202502
  3. OXALIPLATIN [Suspect]
     Active Substance: OXALIPLATIN
     Dosage: CYCLE FOUR (WITH REDUCED DOSE OF 75%)
     Route: 065
     Dates: start: 202503
  4. OXALIPLATIN [Suspect]
     Active Substance: OXALIPLATIN
     Dosage: CYCLE FIVE AND SIX
     Route: 065
     Dates: start: 202504
  5. FLUOROURACIL [Suspect]
     Active Substance: FLUOROURACIL
     Indication: Adenocarcinoma gastric
     Dosage: FIRST CYCLE AND TWO
     Route: 065
     Dates: start: 202501
  6. FLUOROURACIL [Suspect]
     Active Substance: FLUOROURACIL
     Dosage: FIRST CYCLE AND TWO
     Route: 065
     Dates: start: 202502
  7. FLUOROURACIL [Suspect]
     Active Substance: FLUOROURACIL
     Dosage: CYCLE FOUR
     Route: 065
     Dates: start: 202503
  8. LEUCOVORIN [Suspect]
     Active Substance: LEUCOVORIN\LEUCOVORIN CALCIUM
     Indication: Adenocarcinoma gastric
     Dosage: FIRST AND TWO CYCLES
     Route: 065
     Dates: start: 202501
  9. LEUCOVORIN [Suspect]
     Active Substance: LEUCOVORIN\LEUCOVORIN CALCIUM
     Dosage: THIRD CYCLE
     Route: 065
     Dates: start: 202502
  10. LEUCOVORIN [Suspect]
     Active Substance: LEUCOVORIN\LEUCOVORIN CALCIUM
     Dosage: FOURTH CYCLE
     Route: 065
     Dates: start: 202503
  11. LEUCOVORIN [Suspect]
     Active Substance: LEUCOVORIN\LEUCOVORIN CALCIUM
     Dosage: FOURTH CYCLE
     Route: 065
     Dates: start: 202504
  12. NIVOLUMAB [Suspect]
     Active Substance: NIVOLUMAB
     Indication: Adenocarcinoma gastric
     Dosage: FIRST AND TWO CYCLES
     Route: 065
     Dates: start: 202501
  13. NIVOLUMAB [Suspect]
     Active Substance: NIVOLUMAB
     Dosage: THIRD CYCLE
     Route: 065
     Dates: start: 202502
  14. NIVOLUMAB [Suspect]
     Active Substance: NIVOLUMAB
     Dosage: FOURTH CYCLE
     Route: 065
     Dates: start: 202503
  15. NIVOLUMAB [Suspect]
     Active Substance: NIVOLUMAB
     Dosage: FIFTH AND SIX CYCLE
     Route: 065
     Dates: start: 202504
  16. TINZAPARIN [Concomitant]
     Active Substance: TINZAPARIN
     Indication: Pulmonary embolism
     Route: 065
  17. MORPHINE SULFATE [Concomitant]
     Active Substance: MORPHINE SULFATE
     Indication: Product used for unknown indication
     Route: 065
  18. OMEPRAZOLE [Concomitant]
     Active Substance: OMEPRAZOLE
     Indication: Product used for unknown indication
     Route: 065
  19. AMLODIPINE [Concomitant]
     Active Substance: AMLODIPINE BESYLATE
     Indication: Product used for unknown indication
     Route: 065
  20. SENNA LEAF [Concomitant]
     Active Substance: SENNA LEAF
     Indication: Product used for unknown indication
     Route: 065
  21. DIHYDROCODEINE [Concomitant]
     Active Substance: DIHYDROCODEINE
     Indication: Product used for unknown indication
     Route: 065
  22. BECLOMETHASONE DIPROPIONATE [Concomitant]
     Active Substance: BECLOMETHASONE DIPROPIONATE
     Indication: Product used for unknown indication
     Route: 065
  23. DEXAMETHASONE [Concomitant]
     Active Substance: DEXAMETHASONE
     Indication: Product used for unknown indication
     Route: 065
  24. NITROFURANTOIN [Concomitant]
     Active Substance: NITROFURANTOIN
     Indication: Urinary tract infection
     Route: 048

REACTIONS (10)
  - Cytokine release syndrome [Recovered/Resolved]
  - Oesophageal candidiasis [Unknown]
  - Disease recurrence [Recovered/Resolved]
  - Oral candidiasis [Unknown]
  - Weight decreased [Unknown]
  - Neutropenia [Recovered/Resolved]
  - Therapy partial responder [Unknown]
  - Stomatitis [Recovered/Resolved]
  - Fatigue [Recovered/Resolved]
  - Product use in unapproved indication [Unknown]

NARRATIVE: CASE EVENT DATE: 20250101
